FAERS Safety Report 8925008 (Version 2)
Quarter: 2012Q4

REPORT INFORMATION
  Report Type: 
  Country: US (occurrence: US)
  Receive Date: 20121126
  Receipt Date: 20121227
  Transmission Date: 20130627
  Serious: No
  Sender: FDA-Public Use
  Company Number: US-BAYER-2012-121668

PATIENT

DRUGS (1)
  1. NEXAVAR [Suspect]

REACTIONS (1)
  - Vomiting [None]
